FAERS Safety Report 6529964-7 (Version None)
Quarter: 2009Q4

REPORT INFORMATION
  Report Type: 
  Country: None (occurrence: None)
  Receive Date: 20091231
  Receipt Date: 20091217
  Transmission Date: 20100525
  Serious: Yes (Other)
  Sender: FDA-Public Use
  Company Number: 003554

PATIENT
  Age: 68 Year
  Sex: Female
  Weight: 58 kg

DRUGS (9)
  1. PREDNISOLONE [Suspect]
     Indication: RHEUMATOID ARTHRITIS
     Dosage: (3 MG QD ORAL)
     Route: 048
     Dates: start: 19960101
  2. ENBREL [Suspect]
     Indication: RHEUMATOID ARTHRITIS
     Dosage: (25 MG BID, SUBCUTANEOUS)
     Route: 058
     Dates: start: 20040712, end: 20041101
  3. REMICADE [Suspect]
     Indication: RHEUMATOID ARTHRITIS
     Dosage: (3MG/KG  1X/WEEK INTRAVENOUS (NOT OTHERWISE SPECIFIED))
     Route: 042
     Dates: start: 20020513, end: 20040305
  4. AMITRIPTYLINE [Concomitant]
  5. CO-DYDRAMOL [Concomitant]
  6. FOSAMAX [Concomitant]
  7. LISINOPRIL [Concomitant]
  8. PLAQUENIL  /00072603/ [Concomitant]
  9. ZOPICLONE [Concomitant]

REACTIONS (4)
  - BASAL CELL CARCINOMA [None]
  - DISEASE RECURRENCE [None]
  - ECZEMA [None]
  - SKIN GRAFT [None]
